FAERS Safety Report 8127048-8 (Version None)
Quarter: 2012Q1

REPORT INFORMATION
  Report Type: 
  Country: None (occurrence: None)
  Receive Date: 20120210
  Receipt Date: 20120202
  Transmission Date: 20120608
  Serious: Yes (Other)
  Sender: FDA-Public Use
  Company Number: US-BAYER-2011-044790

PATIENT
  Age: 36 Year
  Sex: Female
  Weight: 74.83 kg

DRUGS (20)
  1. TRAZODONE HCL [Concomitant]
     Dosage: 100 MG, UNK
     Dates: start: 20100118
  2. LAMICTAL [Concomitant]
     Indication: DEPRESSION
     Dosage: UNK
     Dates: start: 20060101
  3. HYDROCODONE [Concomitant]
     Indication: NAUSEA
     Dosage: UNK
     Dates: start: 20100301
  4. AZITHROMYCIN [Concomitant]
     Dosage: 250 MG, UNK
     Dates: start: 20100123
  5. ALBUTEROL [Concomitant]
     Dosage: 90 UNK, UNK
     Dates: start: 20100125
  6. YASMIN [Suspect]
     Dosage: UNK
     Dates: start: 20091201, end: 20100101
  7. TUSSIONEX [Concomitant]
     Dosage: UNK
     Dates: start: 20100123
  8. DEPO-MEDROL [Concomitant]
     Dosage: 80 MG, UNK
     Route: 030
     Dates: start: 20100128
  9. BELLADONNA ALKALOIDS [Concomitant]
     Dosage: UNK
     Dates: start: 20100302
  10. DILAUDID [Concomitant]
  11. DROSPIRENONE AND ETHINYL ESTRADIOL [Suspect]
     Dosage: UNK
     Dates: start: 20090514, end: 20091201
  12. DECADRON [Concomitant]
     Dosage: UNK
     Route: 030
     Dates: start: 20100128
  13. ALBUTEROL [Concomitant]
     Dosage: UNK
  14. PROMETHAZINE HCL AND CODEINE [Concomitant]
  15. CYMBALTA [Concomitant]
     Indication: DEPRESSION
     Dosage: UNK
     Dates: start: 20050101, end: 20100101
  16. PHENERGAN [Concomitant]
     Indication: NAUSEA
     Dosage: UNK
     Dates: start: 20090601, end: 20110401
  17. TORADOL [Concomitant]
  18. ALESSE [Concomitant]
     Indication: CONTRACEPTION
     Dosage: UNK UNK, QD
     Route: 048
     Dates: start: 20050101
  19. AUGMENTIN '125' [Concomitant]
     Dosage: UNK
     Dates: start: 20101028
  20. MOTRIN [Concomitant]

REACTIONS (7)
  - CHOLECYSTITIS CHRONIC [None]
  - ABDOMINAL PAIN [None]
  - GALLBLADDER DISORDER [None]
  - VOMITING [None]
  - FOOD INTOLERANCE [None]
  - NAUSEA [None]
  - PAIN [None]
